FAERS Safety Report 6836200-0 (Version None)
Quarter: 2010Q2

REPORT INFORMATION
  Report Type: 
  Country: None (occurrence: None)
  Receive Date: 20100520
  Receipt Date: 20090818
  Transmission Date: 20101027
  Serious: Yes (Other)
  Sender: FDA-Public Use
  Company Number: 2009217136

PATIENT
  Age: 53 Year
  Sex: Female
  Weight: 82 kg

DRUGS (8)
  1. PROVERA [Suspect]
     Indication: HORMONE REPLACEMENT THERAPY
     Dosage: 5 MG, ORAL; 10 MG ORAL
     Route: 048
     Dates: start: 19860101, end: 19930101
  2. PROVERA [Suspect]
     Indication: HORMONE REPLACEMENT THERAPY
     Dosage: 5 MG, ORAL; 10 MG ORAL
     Route: 048
     Dates: start: 19930101, end: 19960601
  3. PREMARIN [Suspect]
     Indication: HORMONE REPLACEMENT THERAPY
     Dosage: 0.9 MG; 1.25 MG; 2.5 MG
     Dates: start: 19860101, end: 19930101
  4. PREMARIN [Suspect]
     Indication: HORMONE REPLACEMENT THERAPY
     Dosage: 0.9 MG; 1.25 MG; 2.5 MG
     Dates: start: 19860101, end: 19930101
  5. PREMARIN [Suspect]
     Indication: HORMONE REPLACEMENT THERAPY
     Dosage: 0.9 MG; 1.25 MG; 2.5 MG
     Dates: start: 19930101, end: 19960101
  6. PREMPRO [Suspect]
     Indication: HORMONE REPLACEMENT THERAPY
     Dates: start: 19930101, end: 19960101
  7. CYCRIN [Suspect]
     Indication: HORMONE REPLACEMENT THERAPY
     Dosage: 10 MG
     Dates: start: 19960101
  8. ESTRATEST [Suspect]
     Indication: HORMONE REPLACEMENT THERAPY
     Dosage: 1.25 MG
     Dates: start: 19960201, end: 19960101

REACTIONS (1)
  - BREAST CANCER FEMALE [None]
